FAERS Safety Report 20335622 (Version 3)
Quarter: 2022Q3

REPORT INFORMATION
  Report Type: Report from Study
  Country: CN (occurrence: CN)
  Receive Date: 20220114
  Receipt Date: 20220706
  Transmission Date: 20221027
  Serious: No
  Sender: FDA-Public Use
  Company Number: CN-002147023-NVSC2022CN002825

PATIENT
  Age: 45 Year
  Sex: Female
  Weight: 56 kg

DRUGS (6)
  1. PLACEBO [Suspect]
     Active Substance: UNSPECIFIED INGREDIENT
     Indication: Migraine
     Dosage: UNK
     Route: 058
     Dates: start: 20201124
  2. ERENUMAB [Suspect]
     Active Substance: ERENUMAB
     Indication: Migraine
     Dosage: 70 MILLIGRAM, Q4WK
     Route: 058
     Dates: start: 20210222, end: 20211220
  3. NORETHINDRONE [Concomitant]
     Active Substance: NORETHINDRONE
     Indication: Heavy menstrual bleeding
     Dosage: UNK
     Route: 065
     Dates: start: 20211214, end: 20220120
  4. PIPERACILLIN SODIUM\TAZOBACTAM SODIUM [Concomitant]
     Active Substance: PIPERACILLIN SODIUM\TAZOBACTAM SODIUM
     Indication: Wound
     Dosage: UNK
     Route: 065
     Dates: start: 20211223, end: 20211229
  5. FERROUS SUCCINATE [Concomitant]
     Active Substance: FERROUS SUCCINATE
     Indication: Anaemia
     Dosage: UNK
     Route: 065
     Dates: start: 20211223
  6. DICLOFENAC SODIUM [Concomitant]
     Active Substance: DICLOFENAC SODIUM
     Indication: Migraine
     Dosage: UNK
     Route: 065
     Dates: start: 20210222

REACTIONS (1)
  - Heavy menstrual bleeding [Recovered/Resolved]

NARRATIVE: CASE EVENT DATE: 20211223
